FAERS Safety Report 5122114-3 (Version None)
Quarter: 2006Q4

REPORT INFORMATION
  Report Type: 
  Country: None (occurrence: None)
  Receive Date: 20061004
  Receipt Date: 20061004
  Transmission Date: 20070319
  Serious: Yes (Hospitalization, Disabling)
  Sender: FDA-Public Use
  Company Number: None

PATIENT
  Age: 26 Year
  Sex: Female

DRUGS (2)
  1. PROMETHAZINE [Suspect]
     Indication: NAUSEA
     Dosage: 25MG    Q6 HOURS PRN   IV BOLUS
     Route: 040
     Dates: start: 20060925, end: 20060927
  2. PROMETHAZINE [Suspect]
     Indication: VOMITING
     Dosage: 25MG    Q6 HOURS PRN   IV BOLUS
     Route: 040
     Dates: start: 20060925, end: 20060927

REACTIONS (4)
  - COMPARTMENT SYNDROME [None]
  - INFUSION SITE REACTION [None]
  - INJECTION SITE REACTION [None]
  - OEDEMA PERIPHERAL [None]
